FAERS Safety Report 21955023 (Version 1)
Quarter: 2023Q1

REPORT INFORMATION
  Report Type: Spontaneous
  Country: PK (occurrence: PK)
  Receive Date: 20230206
  Receipt Date: 20230206
  Transmission Date: 20230418
  Serious: Yes (Other)
  Sender: FDA-Public Use
  Company Number: PK-PFIZER INC-2019424525

PATIENT
  Age: 47 Year
  Sex: Male
  Weight: 87 kg

DRUGS (10)
  1. ENBREL [Suspect]
     Active Substance: ETANERCEPT
     Indication: Ankylosing spondylitis
     Dosage: 50 MILLIGRAM, QWK
     Route: 058
  2. ENBREL [Suspect]
     Active Substance: ETANERCEPT
     Dosage: 50 MILLIGRAM, UNK
     Route: 058
     Dates: start: 20200718
  3. ENBREL [Suspect]
     Active Substance: ETANERCEPT
     Dosage: 50 MILLIGRAM, QWK
     Route: 065
     Dates: start: 20190927
  4. NUBEROL [Concomitant]
     Dosage: UNK, BID
  5. ETORICOXIB [Concomitant]
     Active Substance: ETORICOXIB
     Dosage: 60 MILLIGRAM, QD
  6. DIMIS [Concomitant]
     Dosage: UNK
  7. GLUCOPHAGE XR [Concomitant]
     Active Substance: METFORMIN HYDROCHLORIDE
     Dosage: UNK
  8. MUSIDIN [Concomitant]
     Dosage: UNK
  9. INDROP D [Concomitant]
     Dosage: UNK (2 IN 1 MONTH, EVERY 15 DAYS)
  10. Risek [Concomitant]
     Dosage: UNK

REACTIONS (3)
  - Diabetes mellitus [Unknown]
  - Blood pressure increased [Unknown]
  - Off label use [Unknown]

NARRATIVE: CASE EVENT DATE: 20200718
